FAERS Safety Report 15289434 (Version 1)
Quarter: 2018Q3

REPORT INFORMATION
  Report Type: Report from Study
  Country: RU (occurrence: RU)
  Receive Date: 20180817
  Receipt Date: 20180817
  Transmission Date: 20181010
  Serious: Yes (Hospitalization, Other)
  Sender: FDA-Public Use
  Company Number: RU-SA-2018SA034742

PATIENT
  Age: 41 Year
  Sex: Male
  Weight: 70 kg

DRUGS (2)
  1. HUMALOG [Suspect]
     Active Substance: INSULIN LISPRO
     Indication: TYPE 2 DIABETES MELLITUS
     Dosage: 8 DF,TID
     Route: 058
  2. INSULIN GLARGINE [Suspect]
     Active Substance: INSULIN GLARGINE
     Indication: TYPE 2 DIABETES MELLITUS
     Dosage: 22 DF,QD
     Route: 058

REACTIONS (8)
  - Wound secretion [Recovered/Resolved with Sequelae]
  - Limb injury [Recovered/Resolved with Sequelae]
  - Infection [Recovered/Resolved with Sequelae]
  - Blood glucose increased [Recovered/Resolved]
  - Wound [Recovered/Resolved]
  - Osteomyelitis [Recovered/Resolved]
  - Diabetic foot [Recovered/Resolved]
  - Inflammation [Recovered/Resolved with Sequelae]

NARRATIVE: CASE EVENT DATE: 201612
